FAERS Safety Report 5945739-1 (Version None)
Quarter: 2008Q4

REPORT INFORMATION
  Report Type: 
  Country: None (occurrence: None)
  Receive Date: 20081105
  Receipt Date: 20081021
  Transmission Date: 20090506
  Serious: Yes (Death)
  Sender: FDA-Public Use
  Company Number: 08-ADE-SU-0007-DOR

PATIENT
  Age: 60 Year
  Sex: Female

DRUGS (7)
  1. DORAL [Suspect]
     Indication: INSOMNIA
     Dosage: 15 MG PO BID
     Route: 048
     Dates: end: 20080519
  2. FLUNITRAZEPAM [Concomitant]
  3. LONASEN (BLONANSERIN) [Concomitant]
  4. ABILIFY [Concomitant]
  5. ENALAPRIL MALEATE [Concomitant]
  6. U PAN (LORAZEPAM) [Concomitant]
  7. NATEGLINIDE [Concomitant]

REACTIONS (11)
  - ACUTE MYOCARDIAL INFARCTION [None]
  - BLOOD PRESSURE INCREASED [None]
  - CYANOSIS [None]
  - ELECTROCARDIOGRAM ABNORMAL [None]
  - EYELID OEDEMA [None]
  - FACE OEDEMA [None]
  - MYDRIASIS [None]
  - OEDEMA PERIPHERAL [None]
  - PERIPHERAL COLDNESS [None]
  - PULSE ABSENT [None]
  - RESPIRATORY ARREST [None]
